FAERS Safety Report 5737997-3 (Version None)
Quarter: 2008Q2

REPORT INFORMATION
  Report Type: 
  Country: None (occurrence: None)
  Receive Date: 20080508
  Receipt Date: 20080211
  Transmission Date: 20081010
  Serious: Yes (Other)
  Sender: FDA-Public Use
  Company Number: 45167

PATIENT
  Sex: Female
  Weight: 120 kg

DRUGS (3)
  1. ACYCLOVIR [Suspect]
     Indication: GENITAL HERPES
     Dosage: 1030 MG - EVERY 8 HOURS - IV
     Route: 042
     Dates: start: 20080206
  2. CLINDAMYCIN [Concomitant]
  3. ZOSYN [Concomitant]

REACTIONS (1)
  - NEPHROPATHY TOXIC [None]
